FAERS Safety Report 7071097-8 (Version None)
Quarter: 2010Q4

REPORT INFORMATION
  Report Type: 
  Country: None (occurrence: None)
  Receive Date: 20101027
  Receipt Date: 20101027
  Transmission Date: 20110411
  Serious: Yes (Hospitalization)
  Sender: FDA-Public Use
  Company Number: None

PATIENT
  Age: 1 Year
  Sex: Female
  Weight: 13.6079 kg

DRUGS (1)
  1. HYLAND'S TEETHING TABLETS 2 TABLETS HYLAND'S TEETHING TABLETS [Suspect]
     Indication: TEETHING
     Dosage: 2 TABLETS EVERY HOUR 2  SL
     Route: 060
     Dates: start: 20090901, end: 20100103

REACTIONS (4)
  - CONVULSION [None]
  - CYANOSIS [None]
  - EYE ROLLING [None]
  - FALL [None]
